FAERS Safety Report 24426605 (Version 1)
Quarter: 2024Q4

REPORT INFORMATION
  Report Type: Spontaneous
  Country: US (occurrence: US)
  Receive Date: 20241011
  Receipt Date: 20241011
  Transmission Date: 20250115
  Serious: No
  Sender: ROCHE
  Company Number: US-ROCHE-10000099841

PATIENT
  Sex: Male
  Weight: 100.24 kg

DRUGS (20)
  1. ACTEMRA [Suspect]
     Active Substance: TOCILIZUMAB
     Indication: Product used for unknown indication
     Route: 065
  2. TREPROSTINIL SODIUM [Suspect]
     Active Substance: TREPROSTINIL SODIUM
     Indication: Pulmonary arterial hypertension
     Route: 055
     Dates: start: 20240625
  3. HYDROCODONE BITARTRATE [Concomitant]
     Active Substance: HYDROCODONE BITARTRATE
  4. METHOCARBAMOL [Concomitant]
     Active Substance: METHOCARBAMOL
  5. VOLTAREN ARTHRITIS PAIN [Concomitant]
     Active Substance: DICLOFENAC SODIUM
  6. ATENOLOL [Concomitant]
     Active Substance: ATENOLOL
  7. CLONAZEPAM [Concomitant]
     Active Substance: CLONAZEPAM
  8. MAGNESIUM [Concomitant]
     Active Substance: MAGNESIUM
  9. OLMESARTAN MEDOXOMIL [Concomitant]
     Active Substance: OLMESARTAN MEDOXOMIL
  10. ZIOPTAN [Concomitant]
     Active Substance: TAFLUPROST
  11. LEVALBUTEROL TARTRATE [Concomitant]
     Active Substance: LEVALBUTEROL TARTRATE
  12. SIMBRINZA [Concomitant]
     Active Substance: BRIMONIDINE TARTRATE\BRINZOLAMIDE
  13. ATORVASTATIN CALCIUM [Concomitant]
     Active Substance: ATORVASTATIN CALCIUM
  14. SERTRALINE HYDROCHLORIDE [Concomitant]
     Active Substance: SERTRALINE HYDROCHLORIDE
  15. BIOTIN [Concomitant]
     Active Substance: BIOTIN
  16. BENZONATATE [Concomitant]
     Active Substance: BENZONATATE
  17. OXYGEN [Concomitant]
     Active Substance: OXYGEN
  18. B12 ACTIVE [Concomitant]
  19. HERBALS\TURMERIC [Concomitant]
     Active Substance: HERBALS\TURMERIC
  20. FEXOFENADINE HYDROCHLORIDE [Concomitant]
     Active Substance: FEXOFENADINE HYDROCHLORIDE

REACTIONS (11)
  - Bronchospasm [Unknown]
  - Dyspnoea [Unknown]
  - Oropharyngeal pain [Unknown]
  - Throat irritation [Unknown]
  - Cough [Unknown]
  - Upper-airway cough syndrome [Unknown]
  - Pharyngeal hypoaesthesia [Unknown]
  - Headache [Unknown]
  - Vocal cord paralysis [Unknown]
  - Dizziness [Unknown]
  - Diarrhoea [Not Recovered/Not Resolved]
